FAERS Safety Report 4646824-7 (Version None)
Quarter: 2005Q2

REPORT INFORMATION
  Report Type: 
  Country: None (occurrence: None)
  Receive Date: 20050427
  Receipt Date: 20050411
  Transmission Date: 20051028
  Serious: Yes (Life-Threatening)
  Sender: FDA-Public Use
  Company Number: US-BRISTOL-MYERS SQUIBB COMPANY-12929543

PATIENT
  Age: 57 Year
  Sex: Female

DRUGS (3)
  1. BLINDED: MURAGLITAZAR [Suspect]
     Indication: DIABETES MELLITUS NON-INSULIN-DEPENDENT
     Dosage: THERAPY INTERRUPTED ON 07-MAR-2005
     Route: 048
     Dates: start: 20040415
  2. BLINDED: PLACEBO [Suspect]
     Indication: DIABETES MELLITUS NON-INSULIN-DEPENDENT
     Dosage: THERAPY INTERRUPTED 07-MAR-2005
     Route: 048
     Dates: start: 20040415
  3. METFORMIN HCL [Suspect]
     Indication: DIABETES MELLITUS NON-INSULIN-DEPENDENT
     Dosage: THERAPY INTERRUPTED 07-MAR-2005
     Route: 048
     Dates: start: 20030808

REACTIONS (13)
  - ABDOMINAL PAIN [None]
  - ATRIAL FIBRILLATION [None]
  - CONSTIPATION [None]
  - ERYTHEMA [None]
  - INCISION SITE COMPLICATION [None]
  - INTESTINAL OBSTRUCTION [None]
  - LUNG INFILTRATION [None]
  - NAUSEA [None]
  - PLEURAL EFFUSION [None]
  - POST PROCEDURAL COMPLICATION [None]
  - PYREXIA [None]
  - VOMITING [None]
  - WHITE BLOOD CELL COUNT INCREASED [None]
